FAERS Safety Report 5325018-6 (Version None)
Quarter: 2007Q2

REPORT INFORMATION
  Report Type: 
  Country: None (occurrence: None)
  Receive Date: 20070511
  Receipt Date: 20070511
  Transmission Date: 20071010
  Serious: Yes (Other)
  Sender: FDA-Public Use
  Company Number: None

PATIENT
  Age: 42 Year
  Sex: Female
  Weight: 97.0698 kg

DRUGS (2)
  1. FENTANYL [Suspect]
     Indication: BACK PAIN
     Dosage: 75MCG #2 Q48
  2. FENTANYL [Suspect]
     Indication: PELVIC PAIN
     Dosage: 75MCG #2 Q48

REACTIONS (4)
  - APPLICATION SITE RASH [None]
  - PRURITUS [None]
  - SKIN REACTION [None]
  - URTICARIA [None]
